FAERS Safety Report 18452147 (Version 1)
Quarter: 2020Q4

REPORT INFORMATION
  Report Type: Spontaneous
  Country: US (occurrence: US)
  Receive Date: 20201101
  Receipt Date: 20201101
  Transmission Date: 20210114
  Serious: No
  Sender: FDA-Public Use
  Company Number: None

PATIENT
  Age: 27 Year
  Sex: Female

DRUGS (1)
  1. ERRIN [Suspect]
     Active Substance: NORETHINDRONE
     Indication: CONTRACEPTION
     Dates: start: 20201027, end: 20201101

REACTIONS (3)
  - Depression [None]
  - Mood swings [None]
  - Suicidal ideation [None]

NARRATIVE: CASE EVENT DATE: 20201101
